FAERS Safety Report 10601525 (Version 1)
Quarter: 2014Q4

REPORT INFORMATION
  Report Type: Spontaneous
  Country: US (occurrence: None)
  Receive Date: 20141121
  Receipt Date: 20141121
  Transmission Date: 20150529
  Serious: No
  Sender: FDA-Public Use
  Company Number: None

PATIENT

DRUGS (1)
  1. LEVOTHYROXINE [Suspect]
     Active Substance: LEVOTHYROXINE

REACTIONS (4)
  - Intercepted drug dispensing error [None]
  - Product physical issue [None]
  - Product colour issue [None]
  - Product shape issue [None]

NARRATIVE: CASE EVENT DATE: 20141110
